FAERS Safety Report 6207536-1 (Version None)
Quarter: 2009Q2

REPORT INFORMATION
  Report Type: 
  Country: None (occurrence: None)
  Receive Date: 20090528
  Receipt Date: 20090520
  Transmission Date: 20091009
  Serious: Yes (Other)
  Sender: FDA-Public Use
  Company Number: US-ASTRAZENECA-2009UW13053

PATIENT
  Age: 82 Year
  Sex: Female
  Weight: 108 kg

DRUGS (10)
  1. CRESTOR [Suspect]
     Indication: BLOOD CHOLESTEROL INCREASED
     Route: 048
     Dates: start: 20080901
  2. SYNTHROID [Concomitant]
  3. DIAZIDE [Concomitant]
  4. PROMETRIUM [Concomitant]
  5. ZESTRIL [Concomitant]
  6. ZYLOPRIM [Concomitant]
  7. NORCO [Concomitant]
  8. IBUPROPHEN [Concomitant]
     Indication: ARTHRITIS
  9. CLARINEX [Concomitant]
     Indication: HYPERSENSITIVITY
  10. BECANASE [Concomitant]
     Indication: HYPERSENSITIVITY
     Route: 045

REACTIONS (5)
  - ABDOMINAL PAIN LOWER [None]
  - BIOPSY CERVIX [None]
  - CYSTITIS [None]
  - DIVERTICULITIS [None]
  - PAIN IN EXTREMITY [None]
